FAERS Safety Report 5263375-X (Version None)
Quarter: 2007Q1

REPORT INFORMATION
  Report Type: 
  Country: None (occurrence: None)
  Receive Date: 20070313
  Receipt Date: 20070302
  Transmission Date: 20070707
  Serious: No
  Sender: FDA-Public Use
  Company Number: JP-ELI_LILLY_AND_COMPANY-JP200701003260

PATIENT
  Age: 18 Year
  Sex: Female

DRUGS (9)
  1. ZYPREXA [Suspect]
     Indication: SCHIZOPHRENIA
     Dosage: 10 MG, DAILY (1/D)
     Route: 048
     Dates: start: 20061023, end: 20061025
  2. ZYPREXA [Suspect]
     Dosage: 7.5 MG, DAILY (1/D)
     Route: 048
     Dates: start: 20061026, end: 20061101
  3. ZYPREXA [Suspect]
     Dosage: 10 MG, DAILY (1/D)
     Route: 048
     Dates: start: 20061102, end: 20070116
  4. ZYPREXA [Suspect]
     Dosage: 7.5 MG, DAILY (1/D)
     Route: 048
     Dates: start: 20070117
  5. FLUNITRAZEPAM [Concomitant]
     Indication: INSOMNIA
     Dosage: 3 MG, DAILY (1/D)
     Route: 048
     Dates: start: 20061023, end: 20061122
  6. FLUNITRAZEPAM [Concomitant]
     Dosage: 2 MG, DAILY (1/D)
     Route: 048
     Dates: start: 20061123, end: 20061212
  7. FLUNITRAZEPAM [Concomitant]
     Dosage: 1 MG, DAILY (1/D)
     Route: 048
     Dates: start: 20061213, end: 20061213
  8. LOXONIN [Concomitant]
     Indication: PAIN
     Dosage: 60 MG, DAILY (1/D)
     Route: 048
     Dates: start: 20061023, end: 20061107
  9. SELBEX [Concomitant]
     Indication: GASTRITIS PROPHYLAXIS
     Dosage: 50 MG, DAILY (1/D)
     Route: 048
     Dates: start: 20061023, end: 20061107

REACTIONS (2)
  - ANAEMIA [None]
  - ELECTROENCEPHALOGRAM ABNORMAL [None]
